FAERS Safety Report 6877113-8 (Version None)
Quarter: 2010Q3

REPORT INFORMATION
  Report Type: 
  Country: None (occurrence: None)
  Receive Date: 20100727
  Receipt Date: 20100722
  Transmission Date: 20110219
  Serious: Yes (Death, Hospitalization)
  Sender: FDA-Public Use
  Company Number: SE-MERCK-1007SWE00011

PATIENT
  Age: 91 Year
  Sex: Female

DRUGS (2)
  1. COZAAR [Suspect]
     Indication: ESSENTIAL HYPERTENSION
     Route: 048
     Dates: end: 20091213
  2. INFLUENZA VIRUS A SPLIT VIRION VACCINE INACTIVATED (H1N1) [Suspect]
     Indication: IMMUNISATION
     Route: 030
     Dates: start: 20091201, end: 20091201

REACTIONS (5)
  - DIARRHOEA [None]
  - MYOCARDIAL INFARCTION [None]
  - RENAL FAILURE ACUTE [None]
  - TRANSAMINASES INCREASED [None]
  - VOMITING [None]
